APPROVED DRUG PRODUCT: METROGEL
Active Ingredient: METRONIDAZOLE
Strength: 0.75% **Federal Register determination that product was not discontinued or withdrawn for safety or effectiveness reasons**
Dosage Form/Route: GEL;TOPICAL
Application: N019737 | Product #001
Applicant: GALDERMA LABORATORIES LP
Approved: Nov 22, 1988 | RLD: Yes | RS: No | Type: DISCN